FAERS Safety Report 15694625 (Version 1)
Quarter: 2018Q4

REPORT INFORMATION
  Report Type: Spontaneous
  Country: US (occurrence: US)
  Receive Date: 20181206
  Receipt Date: 20181206
  Transmission Date: 20190205
  Serious: No
  Sender: FDA-Public Use
  Company Number: US-ENDO PHARMACEUTICALS INC-2017-007957

PATIENT
  Age: 59 Year
  Sex: Male
  Weight: 88.44 kg

DRUGS (3)
  1. XIAFLEX [Suspect]
     Active Substance: COLLAGENASE CLOSTRIDIUM HISTOLYTICUM
     Indication: PEYRONIE^S DISEASE
     Dosage: UNK, UNKNOWN, SECOND INJECTION OF FIRST CYCLE
     Route: 026
     Dates: start: 20171004
  2. XIAFLEX [Suspect]
     Active Substance: COLLAGENASE CLOSTRIDIUM HISTOLYTICUM
     Dosage: UNK, UNKNOWN, FIRST INJECTION OF FIRST CYCLE
     Route: 026
     Dates: start: 20170927
  3. ANTIHYPERTENSIVES [Concomitant]
     Active Substance: UNSPECIFIED INGREDIENT
     Indication: HYPERTENSION

REACTIONS (6)
  - Inappropriate schedule of product administration [Unknown]
  - Wrong technique in product usage process [Unknown]
  - Injection site pain [Unknown]
  - Productive cough [Not Recovered/Not Resolved]
  - Penile discharge [Unknown]
  - Impaired work ability [Unknown]

NARRATIVE: CASE EVENT DATE: 20170927
